FAERS Safety Report 7148064-9 (Version None)
Quarter: 2010Q4

REPORT INFORMATION
  Report Type: 
  Country: None (occurrence: None)
  Receive Date: 20101209
  Receipt Date: 20101126
  Transmission Date: 20110411
  Serious: Yes (Hospitalization, Other)
  Sender: FDA-Public Use
  Company Number: FR-ELI_LILLY_AND_COMPANY-FR201009001427

PATIENT
  Age: 31 Year
  Sex: Male

DRUGS (4)
  1. ZYPADHERA [Suspect]
     Indication: SCHIZOPHRENIA
     Dosage: 405 MG/ 4 WEEKS
     Route: 030
     Dates: start: 20100701
  2. ZYPREXA [Suspect]
     Indication: SCHIZOPHRENIA
     Dosage: 15 MG, DAILY (1/D)
     Route: 048
     Dates: end: 20100701
  3. ALPRAZOLAM [Concomitant]
     Indication: SCHIZOPHRENIA
     Route: 048
  4. SERESTA [Concomitant]

REACTIONS (5)
  - AGITATION [None]
  - DELUSION [None]
  - DISINHIBITION [None]
  - DRUG LEVEL INCREASED [None]
  - THERAPEUTIC AGENT TOXICITY [None]
